FAERS Safety Report 5000399-1 (Version None)
Quarter: 2006Q2

REPORT INFORMATION
  Report Type: 
  Country: None (occurrence: None)
  Receive Date: 20060511
  Receipt Date: 20060215
  Transmission Date: 20061013
  Serious: Yes (Hospitalization)
  Sender: FDA-Public Use
  Company Number: CA-MERCK-0602CAN00077

PATIENT
  Age: 60 Year
  Sex: Male
  Weight: 82 kg

DRUGS (14)
  1. ACETAMINOPHEN AND OXYCODONE HYDROCHLORIDE [Concomitant]
     Indication: PAIN
     Route: 065
  2. CEFIXIME [Concomitant]
     Route: 065
  3. METOPROLOL TARTRATE [Concomitant]
     Indication: HYPERTENSION
     Route: 065
     Dates: start: 20030401, end: 20040101
  4. AMITRIPTYLINE HYDROCHLORIDE [Concomitant]
     Indication: ANTIDEPRESSANT THERAPY
     Route: 065
     Dates: start: 20030401, end: 20030501
  5. AMITRIPTYLINE HYDROCHLORIDE [Concomitant]
     Route: 065
     Dates: start: 20030501
  6. TRIAMCINOLONE ACETONIDE [Concomitant]
     Indication: ASTHMA
     Route: 065
  7. MORPHINE SULFATE [Concomitant]
     Indication: PAIN
     Route: 065
  8. TEMAZEPAM [Concomitant]
     Indication: INSOMNIA
     Route: 065
  9. SIMVASTATIN [Concomitant]
     Indication: BLOOD CHOLESTEROL INCREASED
     Route: 065
     Dates: start: 20020201, end: 20040201
  10. VIOXX [Suspect]
     Indication: OSTEOARTHRITIS
     Route: 048
     Dates: start: 20000615, end: 20040901
  11. RANITIDINE HYDROCHLORIDE [Concomitant]
     Indication: HYPERCHLORHYDRIA
     Route: 065
  12. AMOXICILLIN [Concomitant]
     Route: 065
  13. AMOXICILLIN [Concomitant]
     Route: 065
  14. CLARITHROMYCIN [Concomitant]
     Route: 065

REACTIONS (4)
  - ACUTE MYOCARDIAL INFARCTION [None]
  - BRADYCARDIA [None]
  - HYPERLIPIDAEMIA [None]
  - VENTRICULAR EXTRASYSTOLES [None]
